FAERS Safety Report 9871633 (Version 4)
Quarter: 2014Q2

REPORT INFORMATION
  Report Type: Spontaneous
  Country: US (occurrence: US)
  Receive Date: 20140205
  Receipt Date: 20140618
  Transmission Date: 20141212
  Serious: Yes (Hospitalization, Other)
  Sender: FDA-Public Use
  Company Number: US-GILEAD-2014-0093632

PATIENT
  Sex: Female
  Weight: 72.56 kg

DRUGS (18)
  1. LETAIRIS [Suspect]
     Indication: PULMONARY HYPERTENSION
     Dosage: 10 MG, QD
     Route: 065
     Dates: start: 20120809
  2. LETAIRIS [Suspect]
     Indication: RHEUMATOID ARTHRITIS
  3. LETAIRIS [Suspect]
     Indication: MIXED CONNECTIVE TISSUE DISEASE
  4. LETAIRIS [Suspect]
     Indication: CARDIOMYOPATHY
  5. ACTEMRA [Concomitant]
  6. ALLOPURINOL [Concomitant]
  7. ARMOUR THYROID [Concomitant]
  8. COLACE [Concomitant]
  9. COREG [Concomitant]
  10. LEFLUNOMIDE [Concomitant]
  11. LEVEMIR [Concomitant]
  12. NOVOLOG [Concomitant]
  13. PLAVIX [Concomitant]
  14. TRAMADOL [Concomitant]
  15. TYLENOL                            /00020001/ [Concomitant]
  16. ZYRTEC [Concomitant]
  17. REVATIO [Concomitant]
  18. PROCRIT                            /00928302/ [Concomitant]

REACTIONS (6)
  - Haemorrhage [Unknown]
  - Pneumonia [Unknown]
  - Renal failure chronic [Unknown]
  - Unevaluable event [Unknown]
  - Oropharyngeal pain [Unknown]
  - Abdominal discomfort [Unknown]
